FAERS Safety Report 10621430 (Version 1)
Quarter: 2014Q4

REPORT INFORMATION
  Report Type: Spontaneous
  Country: US (occurrence: US)
  Receive Date: 20141203
  Receipt Date: 20141203
  Transmission Date: 20150529
  Serious: Yes (Hospitalization, Other)
  Sender: FDA-Public Use
  Company Number: US-BEH-2014046751

PATIENT
  Sex: Female
  Weight: 65 kg

DRUGS (23)
  1. VITAMIN D [Concomitant]
     Active Substance: CHOLECALCIFEROL
  2. IBUPROFEN. [Concomitant]
     Active Substance: IBUPROFEN
  3. RESTASIS [Concomitant]
     Active Substance: CYCLOSPORINE
  4. ALPRAZOLAM. [Concomitant]
     Active Substance: ALPRAZOLAM
  5. AMANTADINE [Concomitant]
     Active Substance: AMANTADINE
  6. VITAMIN B COMPLEX [Concomitant]
     Active Substance: CYANOCOBALAMIN\DEXPANTHENOL\NIACINAMIDE\PYRIDOXINE HYDROCHLORIDE\RIBOFLAVIN 5^-PHOSPHATE SODIUM\THIAMINE HYDROCHLORIDE\VITAMIN B COMPLEX
  7. PRENATABS RX [Concomitant]
     Active Substance: VITAMINS
  8. EPIPEN [Concomitant]
     Active Substance: EPINEPHRINE
  9. PRISTIQ EXTENDED RELEASE [Concomitant]
     Active Substance: DESVENLAFAXINE SUCCINATE
  10. HYDROCODON ACETAMINOPH [Concomitant]
     Dosage: 7.5-500
  11. SULFAZINE EC [Concomitant]
  12. CALCIUM-MAGNESIUM-ZINC [Concomitant]
  13. HIZENTRA [Suspect]
     Active Substance: HUMAN IMMUNOGLOBULIN G
     Route: 058
  14. ADDERALL XR [Concomitant]
     Active Substance: AMPHETAMINE ASPARTATE\AMPHETAMINE SULFATE\DEXTROAMPHETAMINE SACCHARATE\DEXTROAMPHETAMINE SULFATE
  15. NYSTATIN. [Concomitant]
     Active Substance: NYSTATIN
  16. DOXYCYCLINE HYCLATE. [Concomitant]
     Active Substance: DOXYCYCLINE HYCLATE
  17. DIPHENHYDRAMINE [Concomitant]
     Active Substance: DIPHENHYDRAMINE
  18. CO-Q 10 [Concomitant]
  19. ACETAMINOPHEN. [Concomitant]
     Active Substance: ACETAMINOPHEN
  20. TAMSULOSIN HCL [Concomitant]
     Active Substance: TAMSULOSIN
  21. HIZENTRA [Suspect]
     Active Substance: HUMAN IMMUNOGLOBULIN G
     Indication: IMMUNODEFICIENCY COMMON VARIABLE
     Route: 058
  22. SUPER PROBIOTIC [Concomitant]
  23. FRESHKOTE EYE DROPS [Concomitant]

REACTIONS (6)
  - Renal disorder [Unknown]
  - Renal artery stent placement [Unknown]
  - Nephrolithiasis [Unknown]
  - Lithotripsy [Unknown]
  - Oropharyngeal pain [Unknown]
  - Headache [Unknown]
